FAERS Safety Report 20101928 (Version 1)
Quarter: 2021Q4

REPORT INFORMATION
  Report Type: Spontaneous
  Country: CN (occurrence: None)
  Receive Date: 20211123
  Receipt Date: 20211123
  Transmission Date: 20220303
  Serious: Yes (Hospitalization)
  Sender: FDA-Public Use
  Company Number: CN-Merck Healthcare KGaA-9279012

PATIENT
  Age: 24 Year
  Sex: Female
  Weight: 55 kg

DRUGS (4)
  1. LUVERIS [Suspect]
     Active Substance: LUTROPIN ALFA
     Indication: Infertility
     Route: 058
     Dates: start: 20210416, end: 20210419
  2. CHORIOGONADOTROPIN ALFA [Suspect]
     Active Substance: CHORIOGONADOTROPIN ALFA
     Indication: Infertility
     Route: 030
     Dates: start: 20210419, end: 20210419
  3. UROFOLLITROPIN [Suspect]
     Active Substance: UROFOLLITROPIN
     Indication: Infertility
     Route: 030
     Dates: start: 20210407, end: 20210419
  4. SODIUM CHLORIDE [Concomitant]
     Active Substance: SODIUM CHLORIDE
     Indication: Product used for unknown indication
     Route: 058
     Dates: start: 20210419, end: 20210419

REACTIONS (2)
  - Ovarian hyperstimulation syndrome [Recovering/Resolving]
  - Pelvic infection [Recovering/Resolving]

NARRATIVE: CASE EVENT DATE: 20210422
